FAERS Safety Report 7908969-5 (Version None)
Quarter: 2011Q4

REPORT INFORMATION
  Report Type: 
  Country: None (occurrence: None)
  Receive Date: 20111108
  Receipt Date: 20111025
  Transmission Date: 20120403
  Serious: Yes (Hospitalization, Other)
  Sender: FDA-Public Use
  Company Number: 2011SP050227

PATIENT
  Age: 65 Year
  Sex: Male
  Weight: 106.2 kg

DRUGS (8)
  1. TEMOZOLOMIDE [Suspect]
     Indication: GLIOBLASTOMA
     Dosage: 400 MG; PO, 400 MG; PO
     Route: 048
     Dates: start: 20100824
  2. TEMOZOLOMIDE [Suspect]
     Indication: GLIOBLASTOMA
     Dosage: 400 MG; PO, 400 MG; PO
     Route: 048
     Dates: start: 20110830, end: 20110903
  3. SIMVASTATIN [Concomitant]
  4. ENOXAPARIN SODIUM [Concomitant]
  5. PIPERACILLIN AND TAZOBACTAM [Concomitant]
  6. LOSARTAN POTASSIUM [Concomitant]
  7. BEVACIZUMAB (BEVACIZUMAB) [Suspect]
     Indication: GLIOBLASTOMA
     Dosage: IV
     Route: 042
     Dates: start: 20100824
  8. VALPROATE SODIUM [Concomitant]

REACTIONS (5)
  - NEUTROPHIL COUNT DECREASED [None]
  - CHILLS [None]
  - LUNG NEOPLASM [None]
  - PULMONARY MASS [None]
  - INFECTION [None]
